FAERS Safety Report 4572881-2 (Version None)
Quarter: 2005Q1

REPORT INFORMATION
  Report Type: 
  Country: None (occurrence: None)
  Receive Date: 20050203
  Receipt Date: 20050125
  Transmission Date: 20050727
  Serious: Yes (Other)
  Sender: FDA-Public Use
  Company Number: 2005AP00240

PATIENT
  Age: 57 Year
  Sex: Male

DRUGS (3)
  1. TENORMIN [Suspect]
     Indication: HYPERTENSION
     Dosage: 50 MG DAILY PO
     Route: 048
  2. NORVASC [Suspect]
     Indication: HYPERTENSION
     Dosage: 5 MG DAILY PO
     Route: 048
  3. MINIPRESS [Suspect]
     Indication: HYPERTENSION
     Dosage: 0.5 MG DAILY PO
     Route: 048

REACTIONS (1)
  - METABOLIC DISORDER [None]
